FAERS Safety Report 6867005-2 (Version None)
Quarter: 2010Q2

REPORT INFORMATION
  Report Type: 
  Country: None (occurrence: None)
  Receive Date: 20100610
  Receipt Date: 20100112
  Transmission Date: 20101027
  Serious: No
  Sender: FDA-Public Use
  Company Number: 2010SP004060

PATIENT
  Age: 56 Year
  Sex: Female

DRUGS (14)
  1. SAPHRIS [Suspect]
     Indication: BIPOLAR I DISORDER
     Dosage: 5 MG;HS; 5 MG;BID; 5 MG;HS; 5 MG;BID; 10 MG;BID; 5 MG;BID
     Dates: start: 20100112, end: 20100112
  2. SAPHRIS [Suspect]
     Indication: BIPOLAR I DISORDER
     Dosage: 5 MG;HS; 5 MG;BID; 5 MG;HS; 5 MG;BID; 10 MG;BID; 5 MG;BID
     Dates: start: 20100112, end: 20100122
  3. SAPHRIS [Suspect]
     Indication: BIPOLAR I DISORDER
     Dosage: 5 MG;HS; 5 MG;BID; 5 MG;HS; 5 MG;BID; 10 MG;BID; 5 MG;BID
     Dates: start: 20100122, end: 20100203
  4. SAPHRIS [Suspect]
     Indication: BIPOLAR I DISORDER
     Dosage: 5 MG;HS; 5 MG;BID; 5 MG;HS; 5 MG;BID; 10 MG;BID; 5 MG;BID
     Dates: start: 20100203
  5. LITHIUM [Concomitant]
  6. LAMICTAL [Concomitant]
  7. INDERAL LA [Concomitant]
  8. COGENTIN [Concomitant]
  9. LORAZEPAM [Concomitant]
  10. NEXIUM [Concomitant]
  11. MOBIC [Concomitant]
  12. LOVAZAIM [Concomitant]
  13. FUROSEMIDE [Concomitant]
  14. MOTRIN [Concomitant]

REACTIONS (13)
  - CONSTIPATION [None]
  - COORDINATION ABNORMAL [None]
  - DEPRESSION [None]
  - DIZZINESS [None]
  - DYSARTHRIA [None]
  - DYSKINESIA [None]
  - ELEVATED MOOD [None]
  - GAIT DISTURBANCE [None]
  - INAPPROPRIATE SCHEDULE OF DRUG ADMINISTRATION [None]
  - OEDEMA PERIPHERAL [None]
  - TONGUE DISORDER [None]
  - URINARY TRACT INFECTION [None]
  - WEIGHT INCREASED [None]
